FAERS Safety Report 7475030-6 (Version None)
Quarter: 2011Q1

REPORT INFORMATION
  Report Type: 
  Country: None (occurrence: None)
  Receive Date: 20110302
  Receipt Date: 20101116
  Transmission Date: 20110831
  Serious: Yes (Hospitalization)
  Sender: FDA-Public Use
  Company Number: 163-21880-10090911

PATIENT
  Age: 77 Year
  Sex: Female

DRUGS (1)
  1. REVLIMID [Suspect]
     Indication: MULTIPLE MYELOMA
     Dosage: 15 MG, DAILY ON DAY 1 THROUGH DAY 21, PO
     Route: 048
     Dates: start: 20100810

REACTIONS (4)
  - ASTHENIA [None]
  - FATIGUE [None]
  - ANAEMIA [None]
  - POOR PERIPHERAL CIRCULATION [None]
